FAERS Safety Report 11108768 (Version 1)
Quarter: 2015Q2

REPORT INFORMATION
  Report Type: Report from Study
  Country: SK (occurrence: SK)
  Receive Date: 20150513
  Receipt Date: 20150513
  Transmission Date: 20150821
  Serious: Yes (Hospitalization, Disabling)
  Sender: FDA-Public Use
  Company Number: SK-ROCHE-1577299

PATIENT
  Age: 69 Year
  Sex: Female
  Weight: 62 kg

DRUGS (13)
  1. SORTIS [Concomitant]
     Active Substance: ATORVASTATIN
  2. METFOGAMMA [Concomitant]
     Route: 065
  3. CONCOR COR [Concomitant]
     Active Substance: BISOPROLOL FUMARATE
  4. COAXIL [Concomitant]
  5. LUCETAM [Concomitant]
     Route: 065
     Dates: end: 20140728
  6. HUMULIN NOS [Concomitant]
     Active Substance: INSULIN HUMAN
     Route: 065
     Dates: end: 20140728
  7. CLOPIDOGREL [Concomitant]
     Active Substance: CLOPIDOGREL BISULFATE
  8. ENELBIN (SLOVAKIA) [Concomitant]
     Route: 065
  9. TEBOKAN [Concomitant]
     Route: 065
     Dates: end: 20140728
  10. RANIBIZUMAB [Suspect]
     Active Substance: RANIBIZUMAB
     Indication: NEOVASCULAR AGE-RELATED MACULAR DEGENERATION
     Dosage: LAST DOSE PRIIOR TO SAE: 28/JUL/2014
     Route: 050
     Dates: start: 20140115
  11. VESSEL DUE F [Concomitant]
     Active Substance: SULODEXIDE
  12. LUSOPRESS [Concomitant]
     Active Substance: NITRENDIPINE
     Route: 065
  13. EUTHYROX [Concomitant]
     Active Substance: LEVOTHYROXINE SODIUM
     Route: 065
     Dates: end: 20140728

REACTIONS (1)
  - Transient ischaemic attack [Recovering/Resolving]

NARRATIVE: CASE EVENT DATE: 20140728
